FAERS Safety Report 9302749 (Version 5)
Quarter: 2013Q3

REPORT INFORMATION
  Report Type: Report from Study
  Country: DE (occurrence: DE)
  Receive Date: 20130522
  Receipt Date: 20130710
  Transmission Date: 20140515
  Serious: Yes (Other)
  Sender: FDA-Public Use
  Company Number: PHHO2013DE006657

PATIENT
  Age: 46 Year
  Sex: Female
  Weight: 65 kg

DRUGS (1)
  1. FTY [Suspect]
     Indication: MULTIPLE SCLEROSIS
     Dosage: 0.5 MG, QD
     Route: 048
     Dates: start: 20110505, end: 20130523

REACTIONS (1)
  - Basal cell carcinoma [Recovered/Resolved with Sequelae]
